FAERS Safety Report 9146614 (Version 4)
Quarter: 2013Q3

REPORT INFORMATION
  Report Type: Spontaneous
  Country: US (occurrence: US)
  Receive Date: 20130307
  Receipt Date: 20130719
  Transmission Date: 20140515
  Serious: Yes (Hospitalization, Congenital Anomaly, Other)
  Sender: FDA-Public Use
  Company Number: US-JNJFOC-20130301867

PATIENT
  Age: 1 Month
  Sex: Female

DRUGS (5)
  1. TOPAMAX [Suspect]
     Indication: FOETAL EXPOSURE DURING PREGNANCY
     Route: 064
  2. TEGRETOL [Suspect]
     Indication: FOETAL EXPOSURE DURING PREGNANCY
     Route: 064
  3. TYLENOL [Suspect]
     Route: 064
  4. TYLENOL [Suspect]
     Indication: FOETAL EXPOSURE DURING PREGNANCY
     Route: 064
  5. PRENATAL VITAMINS [Concomitant]
     Indication: FOETAL EXPOSURE DURING PREGNANCY
     Route: 064

REACTIONS (17)
  - VACTERL syndrome [Unknown]
  - Metabolic acidosis [Unknown]
  - Developmental hip dysplasia [Recovered/Resolved]
  - Low set ears [Unknown]
  - Atrial septal defect [Unknown]
  - Strabismus [Not Recovered/Not Resolved]
  - Hand deformity [Unknown]
  - Limb reduction defect [Not Recovered/Not Resolved]
  - Torticollis [Recovered/Resolved]
  - Hydronephrosis [Not Recovered/Not Resolved]
  - Developmental delay [Not Recovered/Not Resolved]
  - Phalangeal agenesis [Unknown]
  - Rib deformity [Unknown]
  - Spinal deformity [Unknown]
  - Aplasia [Unknown]
  - Otitis media [Unknown]
  - Eustachian tube dysfunction [Unknown]
